FAERS Safety Report 24378621 (Version 1)
Quarter: 2024Q3

REPORT INFORMATION
  Report Type: Spontaneous
  Country: US (occurrence: US)
  Receive Date: 20240930
  Receipt Date: 20240930
  Transmission Date: 20241016
  Serious: No
  Sender: PAREXEL
  Company Number: US-COHERUS BIOSCIENCE INC 2024-COH-US000696

PATIENT
  Age: 47 Year
  Sex: Female
  Weight: 79.378 kg

DRUGS (2)
  1. YUSIMRY [Suspect]
     Active Substance: ADALIMUMAB-AQVH
     Indication: Rheumatoid arthritis
     Dosage: 40 MG, INJECT ONE PEN EVERY 2 WEEKS
     Route: 058
     Dates: start: 202407
  2. YUSIMRY [Suspect]
     Active Substance: ADALIMUMAB-AQVH
     Dosage: 40 MG, INJECT ONE PEN EVERY 2 WEEKS
     Route: 058
     Dates: start: 20240729

REACTIONS (3)
  - Pain [Not Recovered/Not Resolved]
  - Product dose omission issue [Not Recovered/Not Resolved]
  - Device malfunction [Not Recovered/Not Resolved]

NARRATIVE: CASE EVENT DATE: 20240701
